FAERS Safety Report 13115730 (Version 5)
Quarter: 2017Q2

REPORT INFORMATION
  Report Type: Report from Study
  Country: FR (occurrence: FR)
  Receive Date: 20170114
  Receipt Date: 20170627
  Transmission Date: 20170830
  Serious: Yes (Other)
  Sender: FDA-Public Use
  Company Number: PHHY2017FR001213

PATIENT
  Sex: Female

DRUGS (1)
  1. GILENYA [Suspect]
     Active Substance: FINGOLIMOD HYDROCHLORIDE
     Indication: RELAPSING-REMITTING MULTIPLE SCLEROSIS
     Dosage: 0.5 MG, QD
     Route: 065
     Dates: start: 20150907, end: 20160315

REACTIONS (3)
  - Spinal pain [Unknown]
  - Invasive ductal breast carcinoma [Not Recovered/Not Resolved]
  - Metastases to bone [Unknown]

NARRATIVE: CASE EVENT DATE: 20160315
